FAERS Safety Report 10719274 (Version 1)
Quarter: 2015Q1

REPORT INFORMATION
  Report Type: Report from Study
  Country: ZA (occurrence: ZA)
  Receive Date: 20150119
  Receipt Date: 20150119
  Transmission Date: 20150721
  Serious: Yes (Death)
  Sender: FDA-Public Use
  Company Number: ZA-AMGEN-ZAFSL2015003617

PATIENT
  Age: 64 Year
  Sex: Female

DRUGS (1)
  1. ARANESP [Suspect]
     Active Substance: DARBEPOETIN ALFA
     Indication: HAEMODIALYSIS
     Dosage: 30 MUG, QWK
     Route: 065
     Dates: start: 20140303

REACTIONS (1)
  - Death [Fatal]

NARRATIVE: CASE EVENT DATE: 201411
